FAERS Safety Report 8336379-8 (Version None)
Quarter: 2012Q2

REPORT INFORMATION
  Report Type: 
  Country: None (occurrence: None)
  Receive Date: 20120504
  Receipt Date: 20120427
  Transmission Date: 20120825
  Serious: Yes (Other)
  Sender: FDA-Public Use
  Company Number: PHFR2011GB007168

PATIENT
  Sex: Female
  Weight: 58.6 kg

DRUGS (4)
  1. CALCIUM D3 [Concomitant]
     Indication: OSTEOPOROSIS
     Dosage: UNK
     Route: 048
     Dates: start: 20020101
  2. ACETAMINOPHEN [Concomitant]
     Indication: ANALGESIC THERAPY
     Dosage: AS NEEDED , UNK
     Route: 048
  3. OMEPRAZOLE [Concomitant]
     Indication: DYSPEPSIA
     Dosage: UNK
     Dates: start: 20060101, end: 20100101
  4. VOLTAREN [Suspect]
     Indication: OSTEOARTHRITIS
     Dosage: 100 MG (INTERMITANTLY), PRN
     Route: 054
     Dates: start: 20070101, end: 20110101

REACTIONS (10)
  - OEDEMA PERIPHERAL [None]
  - PAIN [None]
  - PAIN IN EXTREMITY [None]
  - PARAESTHESIA [None]
  - TINNITUS [None]
  - SYNCOPE [None]
  - HEART RATE INCREASED [None]
  - DERMATITIS [None]
  - FATIGUE [None]
  - RASH MACULAR [None]
